FAERS Safety Report 8578638-X (Version None)
Quarter: 2012Q3

REPORT INFORMATION
  Report Type: 
  Country: None (occurrence: None)
  Receive Date: 20120808
  Receipt Date: 20120731
  Transmission Date: 20120928
  Serious: Yes (Death)
  Sender: FDA-Public Use
  Company Number: JP-GE HEALTHCARE MEDICAL DIAGNOSTICS-MSTR-NO-1205S-0028

PATIENT
  Age: 84 Year
  Sex: Male

DRUGS (4)
  1. FLUTAMIDE [Concomitant]
  2. PROSTAL [Concomitant]
  3. METASTRON [Suspect]
     Indication: METASTATIC PAIN
     Route: 042
     Dates: start: 20120309, end: 20120309
  4. LEUPROLIDE ACETATE [Concomitant]

REACTIONS (1)
  - PANCYTOPENIA [None]
